FAERS Safety Report 8330280-1 (Version None)
Quarter: 2012Q2

REPORT INFORMATION
  Report Type: 
  Country: None (occurrence: None)
  Receive Date: 20120502
  Receipt Date: 20120423
  Transmission Date: 20120825
  Serious: Yes (Death, Life-Threatening, Hospitalization)
  Sender: FDA-Public Use
  Company Number: US-MPIJNJ-2012-00495

PATIENT
  Age: 8 Year
  Sex: Female
  Weight: 41.9 kg

DRUGS (9)
  1. PREDNISONE [Suspect]
     Indication: B PRECURSOR TYPE ACUTE LEUKAEMIA
     Dosage: 20 MG/M2, UNK
     Route: 048
     Dates: start: 20111202, end: 20111229
  2. METHOTREXATE [Suspect]
     Indication: B PRECURSOR TYPE ACUTE LEUKAEMIA
     Dosage: UNK
     Dates: start: 20111202, end: 20120106
  3. ETOPOSIDE [Suspect]
     Indication: B PRECURSOR TYPE ACUTE LEUKAEMIA
     Dosage: 100 MG/M2, CYCLIC
     Route: 042
     Dates: start: 20120106, end: 20120110
  4. CYTARABINE [Suspect]
     Indication: B PRECURSOR TYPE ACUTE LEUKAEMIA
     Dosage: UNK
     Route: 037
     Dates: start: 20111202, end: 20120130
  5. VINCRISTINE [Suspect]
     Indication: B PRECURSOR TYPE ACUTE LEUKAEMIA
     Dosage: 1.5 MG/M2, CYCLIC
     Route: 040
     Dates: start: 20111202, end: 20111223
  6. DOXORUBICIN HCL [Suspect]
     Indication: B PRECURSOR TYPE ACUTE LEUKAEMIA
     Dosage: 60 MG/M2, CYCLIC
     Route: 042
     Dates: start: 20111202, end: 20111202
  7. CYCLOPHOSPHAMIDE [Suspect]
     Indication: B PRECURSOR TYPE ACUTE LEUKAEMIA
     Dosage: 440 MG/M2, CYCLIC
     Route: 042
     Dates: start: 20120106, end: 20120110
  8. VELCADE [Suspect]
     Indication: B PRECURSOR TYPE ACUTE LEUKAEMIA
     Dosage: 1.3 MG/M2, CYCLIC
     Route: 040
     Dates: start: 20111202, end: 20120113
  9. PEGASPARGASE [Suspect]
     Indication: B PRECURSOR TYPE ACUTE LEUKAEMIA
     Dosage: 2500 UNK, CYCLIC
     Dates: start: 20111202, end: 20120104

REACTIONS (15)
  - ATELECTASIS [None]
  - PLEURAL EFFUSION [None]
  - PULMONARY OEDEMA [None]
  - BLOOD UREA INCREASED [None]
  - PROCEDURAL HAEMORRHAGE [None]
  - BLOOD POTASSIUM INCREASED [None]
  - ASPERGILLOSIS [None]
  - BONE MARROW FAILURE [None]
  - PYREXIA [None]
  - TRACHEITIS [None]
  - DISEASE PROGRESSION [None]
  - ENTEROCOCCUS TEST POSITIVE [None]
  - HEART RATE INCREASED [None]
  - BLOOD PRESSURE DECREASED [None]
  - LUNG INFILTRATION [None]
